FAERS Safety Report 13095017 (Version 4)
Quarter: 2020Q3

REPORT INFORMATION
  Report Type: Report from Study
  Country: FR (occurrence: FR)
  Receive Date: 20170106
  Receipt Date: 20200928
  Transmission Date: 20201102
  Serious: Yes (Other)
  Sender: FDA-Public Use
  Company Number: FR-EXELIXIS-XL18417007899

PATIENT
  Age: 61 Year
  Sex: Male
  Weight: 46 kg

DRUGS (7)
  1. CALCIDIA [Concomitant]
     Active Substance: CALCIUM CARBONATE
  2. EFFERALGAN CODEINE [Concomitant]
     Active Substance: ACETAMINOPHEN\CODEINE PHOSPHATE
  3. BLINDED XL184 [Suspect]
     Active Substance: CABOZANTINIB
     Indication: MEDULLARY THYROID CANCER
     Dosage: UNK UNK, QD
     Route: 048
     Dates: start: 20161205, end: 20170203
  4. BLINDED XL184 [Suspect]
     Active Substance: CABOZANTINIB
     Indication: MEDULLARY THYROID CANCER
     Dosage: UNK UNK, QD
     Route: 048
     Dates: start: 20161205, end: 20170203
  5. DEXERYL [Concomitant]
  6. LEVOTHYROX [Concomitant]
     Active Substance: LEVOTHYROXINE
  7. FORTIMEL [Concomitant]
     Active Substance: DIETARY SUPPLEMENT

REACTIONS (2)
  - Amylase increased [Recovering/Resolving]
  - Palmar-plantar erythrodysaesthesia syndrome [Recovering/Resolving]

NARRATIVE: CASE EVENT DATE: 201612
